FAERS Safety Report 16798270 (Version 1)
Quarter: 2019Q4

REPORT INFORMATION
  Report Type: Spontaneous
  Country: US (occurrence: US)
  Receive Date: 20190911
  Receipt Date: 20190911
  Transmission Date: 20200122
  Serious: Yes (Hospitalization, Disabling, Other)
  Sender: FDA-Public Use
  Company Number: None

PATIENT
  Age: 51 Year
  Sex: Female
  Weight: 63 kg

DRUGS (1)
  1. PLAN B [Suspect]
     Active Substance: LEVONORGESTREL
     Dates: start: 20190523, end: 20190524

REACTIONS (7)
  - Product monitoring error [None]
  - Transfusion [None]
  - Hysterectomy [None]
  - Biopsy uterus abnormal [None]
  - Circumstance or information capable of leading to medication error [None]
  - Iatrogenic injury [None]
  - Transcription medication error [None]

NARRATIVE: CASE EVENT DATE: 20190523
